FAERS Safety Report 8454890-6 (Version None)
Quarter: 2012Q2

REPORT INFORMATION
  Report Type: 
  Country: None (occurrence: None)
  Receive Date: 20120614
  Receipt Date: 20120606
  Transmission Date: 20120825
  Serious: Yes (Hospitalization)
  Sender: FDA-Public Use
  Company Number: 2012SP029610

PATIENT
  Age: 51 Year
  Sex: Male
  Weight: 122 kg

DRUGS (7)
  1. PEG-INTRON [Suspect]
     Indication: HEPATITIS C
     Dosage: 150 MCG/KG;QW;SC
     Route: 058
     Dates: start: 20120508, end: 20120522
  2. REBETOL [Suspect]
     Indication: HEPATITIS C
     Dosage: 1000 MG;QD;PO
     Route: 048
     Dates: start: 20120508, end: 20120528
  3. AMLODIPINE [Concomitant]
  4. ALLOPURINOL [Concomitant]
  5. ZOLPIDEM [Concomitant]
  6. OLMETEC [Concomitant]
  7. TELAVIC (ANTIVIRALS NOS) [Suspect]
     Indication: HEPATITIS C
     Dosage: 2250 MG;QD;PO
     Route: 048
     Dates: start: 20120508, end: 20120528

REACTIONS (2)
  - BLOOD CREATINE PHOSPHOKINASE INCREASED [None]
  - HYPERURICAEMIA [None]
